FAERS Safety Report 4340270-1 (Version None)
Quarter: 2004Q2

REPORT INFORMATION
  Report Type: 
  Country: None (occurrence: None)
  Receive Date: 20040412
  Receipt Date: 20040405
  Transmission Date: 20050107
  Serious: Yes (Death, Life-Threatening, Other)
  Sender: FDA-Public Use
  Company Number: STA-AE-04-MTX-013

PATIENT
  Sex: Female

DRUGS (3)
  1. RHEUMATREX [Suspect]
     Indication: RHEUMATOID ARTHRITIS
     Dosage: 4 OR 6 MG WEEKLY, ORAL
     Route: 048
  2. AZULFIDINE [Concomitant]
  3. LOXONIN (LOXOPROFEN SODIUM) [Concomitant]

REACTIONS (4)
  - BONE MARROW DEPRESSION [None]
  - MYELODYSPLASTIC SYNDROME [None]
  - PNEUMONIA [None]
  - RENAL DISORDER [None]
